FAERS Safety Report 6075329-4 (Version None)
Quarter: 2009Q1

REPORT INFORMATION
  Report Type: 
  Country: None (occurrence: None)
  Receive Date: 20090212
  Receipt Date: 20090202
  Transmission Date: 20090719
  Serious: Yes (Other)
  Sender: FDA-Public Use
  Company Number: FR-WATSON-2009-00851

PATIENT
  Sex: Female

DRUGS (1)
  1. NICARDIPINE (WATSON LABORATORIES) [Suspect]
     Indication: TOCOLYSIS
     Dosage: UNK
     Route: 042

REACTIONS (1)
  - ACUTE PULMONARY OEDEMA [None]
